FAERS Safety Report 9608612 (Version 2)
Quarter: 2013Q4

REPORT INFORMATION
  Report Type: Spontaneous
  Country: US (occurrence: US)
  Receive Date: 20131009
  Receipt Date: 20131011
  Transmission Date: 20140711
  Serious: Yes (Other)
  Sender: FDA-Public Use
  Company Number: US-PFIZER INC-2013286318

PATIENT
  Sex: Male

DRUGS (1)
  1. ZYVOX [Suspect]
     Dosage: UNK

REACTIONS (1)
  - Guillain-Barre syndrome [Unknown]
